FAERS Safety Report 16821545 (Version 9)
Quarter: 2021Q2

REPORT INFORMATION
  Report Type: Spontaneous
  Country: US (occurrence: US)
  Receive Date: 20190918
  Receipt Date: 20210402
  Transmission Date: 20210716
  Serious: Yes (Hospitalization, Other)
  Sender: FDA-Public Use
  Company Number: US-PFIZER INC-2019403137

PATIENT
  Age: 65 Year
  Sex: Male
  Weight: 127 kg

DRUGS (8)
  1. LYRICA [Suspect]
     Active Substance: PREGABALIN
     Indication: NEURALGIA
     Dosage: 150 MG, 3X/DAY
     Dates: start: 201802
  2. MAGNESIUM [Concomitant]
     Active Substance: MAGNESIUM
     Dosage: 1500 MG, DAILY
  3. URO MP [Concomitant]
     Dosage: UNK, 3X/DAY
  4. HYDROCHLOROTHIAZIDE. [Concomitant]
     Active Substance: HYDROCHLOROTHIAZIDE
     Dosage: 25 MG, 1X/DAY [1 PILL AM]
  5. OMEPRAZOLE. [Concomitant]
     Active Substance: OMEPRAZOLE
     Dosage: 20 MG, 1X/DAY [20 MG IN AM]
  6. COZAAR [Concomitant]
     Active Substance: LOSARTAN POTASSIUM
     Dosage: 100 MG, 1X/DAY [1 PILL BED]
  7. MOTRIN [Concomitant]
     Active Substance: IBUPROFEN
     Dosage: 4 DF, 1X/DAY (4 PILLS IN AM)
  8. OXY [ACETYLSALICYLIC ACID] [Concomitant]
     Active Substance: ASPIRIN
     Dosage: 30 MG, 3X/DAY

REACTIONS (4)
  - Neuropathy peripheral [Unknown]
  - Rectal cancer recurrent [Unknown]
  - Anal cancer [Not Recovered/Not Resolved]
  - Gait inability [Unknown]
